FAERS Safety Report 7526897-4 (Version None)
Quarter: 2011Q2

REPORT INFORMATION
  Report Type: 
  Country: None (occurrence: None)
  Receive Date: 20110606
  Receipt Date: 20040219
  Transmission Date: 20111010
  Serious: Yes (Hospitalization, Other)
  Sender: FDA-Public Use
  Company Number: PHFR2004GB00933

PATIENT
  Sex: Male

DRUGS (5)
  1. ZOLPIDEM TARTRATE [Concomitant]
     Indication: INSOMNIA
     Dosage: 10MG/DAY
     Route: 048
     Dates: start: 20030704, end: 20040217
  2. PRILOSEC [Concomitant]
     Indication: GASTRIC DISORDER
     Dosage: 40MG/DAY
     Route: 048
     Dates: start: 20030704, end: 20040209
  3. PEPTAC [Concomitant]
     Indication: GASTRIC DISORDER
     Dosage: 40 ML/DAY
     Route: 048
     Dates: start: 20030704, end: 20040217
  4. CLOZAPINE [Suspect]
     Indication: SCHIZOPHRENIA
     Dosage: 125MG/DAY
     Route: 048
     Dates: start: 20040128, end: 20040205
  5. LORAZEPAM [Concomitant]
     Indication: ANXIETY
     Dosage: 2 MG/DAY
     Route: 048
     Dates: start: 20040113, end: 20040211

REACTIONS (2)
  - HAEMATEMESIS [None]
  - OESOPHAGITIS [None]
